FAERS Safety Report 10495526 (Version 1)
Quarter: 2014Q4

REPORT INFORMATION
  Report Type: Spontaneous
  Country: CO (occurrence: CO)
  Receive Date: 20141003
  Receipt Date: 20141003
  Transmission Date: 20150528
  Serious: Yes (Death, Hospitalization)
  Sender: FDA-Public Use
  Company Number: CO-UCBSA-2014013482

PATIENT
  Age: 69 Year
  Sex: Male

DRUGS (1)
  1. NEUPRO [Suspect]
     Active Substance: ROTIGOTINE
     Indication: PARKINSON^S DISEASE
     Dosage: 6 MG DAILY
     Route: 062
     Dates: start: 20140306, end: 20140322

REACTIONS (2)
  - Pneumonia [Unknown]
  - Respiratory disorder [Fatal]

NARRATIVE: CASE EVENT DATE: 201403
